FAERS Safety Report 7209152-1 (Version None)
Quarter: 2011Q1

REPORT INFORMATION
  Report Type: 
  Country: None (occurrence: None)
  Receive Date: 20110103
  Receipt Date: 20110103
  Transmission Date: 20110831
  Serious: No
  Sender: FDA-Public Use
  Company Number: None

PATIENT
  Age: 63 Year
  Sex: Male
  Weight: 56.25 kg

DRUGS (1)
  1. HEPARIN [Suspect]
     Indication: SURGERY
     Dosage: 1000 UNITS UD IV
     Route: 042
     Dates: start: 20100708, end: 20100715

REACTIONS (1)
  - HEPARIN-INDUCED THROMBOCYTOPENIA [None]
